FAERS Safety Report 6111306-2 (Version None)
Quarter: 2009Q1

REPORT INFORMATION
  Report Type: 
  Country: None (occurrence: None)
  Receive Date: 20090309
  Receipt Date: 20090220
  Transmission Date: 20090719
  Serious: Yes (Death)
  Sender: FDA-Public Use
  Company Number: SPV1-2009-00276

PATIENT
  Age: 50 Year
  Sex: Male

DRUGS (1)
  1. ANAGRELIDE HYDROCHLORIDE [Suspect]
     Indication: THROMBOCYTHAEMIA
     Dosage: ORAL
     Route: 048
     Dates: start: 20010101

REACTIONS (1)
  - NEOPLASM PROSTATE [None]
